FAERS Safety Report 17897340 (Version 5)
Quarter: 2020Q3

REPORT INFORMATION
  Report Type: Spontaneous
  Country: US (occurrence: US)
  Receive Date: 20200615
  Receipt Date: 20200730
  Transmission Date: 20201103
  Serious: No
  Sender: FDA-Public Use
  Company Number: US-PFIZER INC-2020230139

PATIENT
  Age: 68 Year
  Sex: Male
  Weight: 65.32 kg

DRUGS (3)
  1. TAMSULOSIN [Suspect]
     Active Substance: TAMSULOSIN
     Dosage: UNK
  2. LYRICA [Suspect]
     Active Substance: PREGABALIN
     Indication: BACK PAIN
     Dosage: 200 MG, 2X/DAY(TWO CAPSULES TWICE A DAY BY MOUTH)
     Route: 048
  3. LYRICA [Suspect]
     Active Substance: PREGABALIN
     Indication: PAIN IN EXTREMITY
     Dosage: 100 MG, 2X/DAY
     Route: 048

REACTIONS (4)
  - Coronavirus infection [Unknown]
  - Product physical issue [Unknown]
  - Poor quality product administered [Unknown]
  - Drug ineffective [Unknown]
